FAERS Safety Report 6998140-6 (Version None)
Quarter: 2010Q3

REPORT INFORMATION
  Report Type: 
  Country: None (occurrence: None)
  Receive Date: 20100920
  Receipt Date: 20090721
  Transmission Date: 20110219
  Serious: Yes (Other)
  Sender: FDA-Public Use
  Company Number: US-ASTRAZENECA-2007UW04323

PATIENT
  Sex: Male

DRUGS (6)
  1. SEROQUEL [Suspect]
     Route: 048
     Dates: start: 20050311
  2. FLUOXETINE [Concomitant]
     Dates: start: 20050310
  3. CLONAZEPAM [Concomitant]
     Route: 048
     Dates: start: 20050311
  4. TRAZODONE HCL [Concomitant]
     Route: 048
     Dates: start: 20050311
  5. DEPAKOTE ER [Concomitant]
     Dates: start: 20050523
  6. LEXAPRO [Concomitant]
     Dates: start: 20050523

REACTIONS (4)
  - DIABETES MELLITUS [None]
  - DIABETIC KETOACIDOSIS [None]
  - PANCREATITIS [None]
  - TYPE 2 DIABETES MELLITUS [None]
